FAERS Safety Report 19437439 (Version 2)
Quarter: 2021Q4

REPORT INFORMATION
  Report Type: Spontaneous
  Country: BE (occurrence: BE)
  Receive Date: 20210619
  Receipt Date: 20211217
  Transmission Date: 20220303
  Serious: Yes (Other)
  Sender: FDA-Public Use
  Company Number: BE-AUROBINDO-AUR-APL-2021-026085

PATIENT
  Age: 80 Year
  Sex: Male

DRUGS (4)
  1. MEMANTINE [Suspect]
     Active Substance: MEMANTINE
     Indication: Product used for unknown indication
     Dosage: 10 MILLIGRAM, TWO TIMES A DAY
     Route: 065
  2. MEMANTINE [Suspect]
     Active Substance: MEMANTINE
     Dosage: 5 MILLIGRAM, TWO TIMES A DAY
     Route: 065
  3. RIVASTIGMINE [Concomitant]
     Active Substance: RIVASTIGMINE
     Indication: Product used for unknown indication
     Dosage: 4.6 MILLIGRAM, ONCE A DAY
     Route: 065
  4. RIVASTIGMINE [Concomitant]
     Active Substance: RIVASTIGMINE
     Dosage: 8.5 MILLIGRAM, ONCE A DAY
     Route: 065

REACTIONS (1)
  - Hallucination, olfactory [Unknown]
